FAERS Safety Report 23135155 (Version 3)
Quarter: 2023Q4

REPORT INFORMATION
  Report Type: Spontaneous
  Country: MX (occurrence: None)
  Receive Date: 20231101
  Receipt Date: 20231219
  Transmission Date: 20240110
  Serious: Yes (Other)
  Sender: FDA-Public Use
  Company Number: 2023A245481

PATIENT
  Age: 23730 Day
  Sex: Female
  Weight: 67 kg

DRUGS (2)
  1. XIGDUO XR [Suspect]
     Active Substance: DAPAGLIFLOZIN PROPANEDIOL\METFORMIN HYDROCHLORIDE
     Indication: Type 2 diabetes mellitus
     Dosage: 5/1000MG
     Route: 048
     Dates: start: 20211014
  2. DRAMAMINE [Concomitant]
     Active Substance: DIMENHYDRINATE
     Indication: Vertigo

REACTIONS (6)
  - Dyspnoea [Not Recovered/Not Resolved]
  - Agitation [Not Recovered/Not Resolved]
  - Blood pressure increased [Recovering/Resolving]
  - Product blister packaging issue [Unknown]
  - Product dispensing error [Unknown]
  - Product packaging quantity issue [Unknown]

NARRATIVE: CASE EVENT DATE: 20231017
